FAERS Safety Report 12195218 (Version 1)
Quarter: 2016Q1

REPORT INFORMATION
  Report Type: Spontaneous
  Country: US (occurrence: US)
  Receive Date: 20160321
  Receipt Date: 20160321
  Transmission Date: 20160526
  Serious: No
  Sender: FDA-Public Use
  Company Number: US-TEVA-556609USA

PATIENT
  Sex: Male

DRUGS (1)
  1. NORTRIPTYLINE [Suspect]
     Active Substance: NORTRIPTYLINE
     Dosage: 50 MILLIGRAM DAILY; EVERY NIGHT

REACTIONS (4)
  - Dyspepsia [Unknown]
  - Dysgeusia [Unknown]
  - Product substitution issue [Unknown]
  - Product taste abnormal [Unknown]
